FAERS Safety Report 4727710-0 (Version None)
Quarter: 2005Q3

REPORT INFORMATION
  Report Type: 
  Country: None (occurrence: None)
  Receive Date: 20050727
  Receipt Date: 20050714
  Transmission Date: 20060218
  Serious: Yes (Hospitalization)
  Sender: FDA-Public Use
  Company Number: 2005089591

PATIENT
  Age: 54 Year
  Sex: Male

DRUGS (8)
  1. MEDROL [Suspect]
     Indication: RENAL TRANSPLANT
     Dosage: (8 MG, 1 IN 1 D), ORAL
     Route: 048
     Dates: start: 19900101
  2. IMURAN [Suspect]
     Indication: RENAL TRANSPLANT
     Dosage: 50 MG ( 1IN 1 D), ORAL
     Route: 048
     Dates: start: 19900101, end: 20040602
  3. SANDIMMUNE [Suspect]
     Indication: RENAL TRANSPLANT
     Dosage: 75 MG (1 IN 1 D), ORAL
     Route: 048
     Dates: start: 19900101
  4. CARDENALIN (DOXAZOSIN) [Concomitant]
  5. PRAVASTATIN [Concomitant]
  6. MARZULENE S (LEVOGLUTAMIDE, SODIUM GUALENATE) [Concomitant]
  7. OMEPRAZOLE [Concomitant]
  8. COTRIM [Concomitant]

REACTIONS (1)
  - PNEUMOCYSTIS JIROVECI PNEUMONIA [None]
